FAERS Safety Report 10406543 (Version 2)
Quarter: 2014Q4

REPORT INFORMATION
  Report Type: Spontaneous
  Country: IT (occurrence: None)
  Receive Date: 20140821
  Receipt Date: 20141212
  Transmission Date: 20150528
  Serious: Yes (Hospitalization, Congenital Anomaly)
  Sender: FDA-Public Use
  Company Number: 7313130

PATIENT
  Age: 4 Year
  Sex: Female

DRUGS (1)
  1. EUTIROX [Suspect]
     Active Substance: LEVOTHYROXINE SODIUM
     Indication: ACCIDENTAL EXPOSURE TO PRODUCT BY CHILD
     Dosage: (750 MCG, TOTAL), ORAL
     Route: 048
     Dates: start: 20140601, end: 20140601

REACTIONS (3)
  - Drug administration error [None]
  - Accidental exposure to product by child [None]
  - Vomiting [None]

NARRATIVE: CASE EVENT DATE: 20140601
